FAERS Safety Report 4651943-5 (Version None)
Quarter: 2005Q2

REPORT INFORMATION
  Report Type: 
  Country: None (occurrence: None)
  Receive Date: 20050502
  Receipt Date: 20050420
  Transmission Date: 20051028
  Serious: Yes (Hospitalization, Other)
  Sender: FDA-Public Use
  Company Number: HQWYE181322APR05

PATIENT
  Age: 56 Year
  Sex: Female
  Weight: 82.5 kg

DRUGS (3)
  1. RAPAMUNE [Suspect]
     Indication: PROPHYLAXIS AGAINST TRANSPLANT REJECTION
     Dosage: 5  MG 1X PER 1 DAY
  2. CORTICOSTEROID NOS (CORTOCOSTEROID NOS) [Suspect]
     Dosage: 6 MG 1X PER 1 DAY
  3. TACROLIMUS (TACROLIMUS) [Suspect]
     Indication: PROPHYLAXIS AGAINST TRANSPLANT REJECTION
     Dosage: 6 MG 1X PER1 DAY

REACTIONS (2)
  - HAEMORRHAGE [None]
  - PROCEDURAL COMPLICATION [None]
